FAERS Safety Report 21854031 (Version 2)
Quarter: 2023Q1

REPORT INFORMATION
  Report Type: Spontaneous
  Country: US (occurrence: US)
  Receive Date: 20230112
  Receipt Date: 20230113
  Transmission Date: 20230417
  Serious: No
  Sender: FDA-Public Use
  Company Number: US-ABBVIE-4266862

PATIENT
  Sex: Female
  Weight: 61.234 kg

DRUGS (1)
  1. DEPAKOTE ER [Suspect]
     Active Substance: DIVALPROEX SODIUM
     Indication: Bipolar disorder
     Route: 048

REACTIONS (4)
  - Gastrointestinal pain [Unknown]
  - Abdominal pain lower [Unknown]
  - Insomnia [Unknown]
  - Fatigue [Unknown]
